FAERS Safety Report 8501199-8 (Version None)
Quarter: 2012Q3

REPORT INFORMATION
  Report Type: 
  Country: None (occurrence: None)
  Receive Date: 20120710
  Receipt Date: 20100708
  Transmission Date: 20120928
  Serious: No
  Sender: FDA-Public Use
  Company Number: US-PFIZER INC-IDR-00394

PATIENT
  Sex: Male

DRUGS (3)
  1. PROPRANOLOL HCL AND HYDROCHLOROTHIAZIDE [Suspect]
     Indication: TACHYCARDIA
     Dosage: 1 CAPSULE 1X/DAY
     Route: 048
  2. PROPRANOLOL HCL AND HYDROCHLOROTHIAZIDE [Suspect]
     Indication: BLOOD PRESSURE INCREASED
  3. PROPRANOLOL HCL AND HYDROCHLOROTHIAZIDE [Suspect]
     Indication: PANIC DISORDER

REACTIONS (1)
  - HEART RATE INCREASED [None]
